FAERS Safety Report 13951199 (Version 1)
Quarter: 2017Q3

REPORT INFORMATION
  Report Type: Spontaneous
  Country: DE (occurrence: DE)
  Receive Date: 20170908
  Receipt Date: 20170908
  Transmission Date: 20171128
  Serious: Yes (Hospitalization)
  Sender: FDA-Public Use
  Company Number: DE-BAYER-2017-171753

PATIENT
  Age: 28 Year
  Sex: Male
  Weight: 78 kg

DRUGS (3)
  1. ULTRAVIST [Suspect]
     Active Substance: IOPROMIDE
     Indication: COMPUTERISED TOMOGRAM THORAX
     Dosage: 80 ML, ONCE
     Route: 042
  2. ULTRAVIST [Suspect]
     Active Substance: IOPROMIDE
     Indication: MASS
  3. ULTRAVIST [Suspect]
     Active Substance: IOPROMIDE
     Indication: LUNG INFILTRATION

REACTIONS (4)
  - Dyspnoea [Recovered/Resolved]
  - Rash [Recovered/Resolved]
  - Sneezing [Recovered/Resolved]
  - Oedema [Recovered/Resolved]
